FAERS Safety Report 24299504 (Version 1)
Quarter: 2024Q3

REPORT INFORMATION
  Report Type: Spontaneous
  Country: CN (occurrence: CN)
  Receive Date: 20240909
  Receipt Date: 20240909
  Transmission Date: 20241017
  Serious: Yes (Hospitalization)
  Sender: PFIZER
  Company Number: CN-PFIZER INC-PV202400116791

PATIENT
  Age: 54 Year
  Sex: Female
  Weight: 33 kg

DRUGS (4)
  1. LINEZOLID [Suspect]
     Active Substance: LINEZOLID
     Indication: Anti-infective therapy
     Dosage: 600 MG, 1X/DAY
     Route: 048
     Dates: start: 20240901, end: 20240903
  2. LINEZOLID [Suspect]
     Active Substance: LINEZOLID
     Indication: Anti-infective therapy
     Dosage: 600 MG, 1X/DAY
     Route: 041
     Dates: start: 20240901, end: 20240903
  3. HYDROXYUREA [Suspect]
     Active Substance: HYDROXYUREA
     Indication: Chronic myelomonocytic leukaemia
     Dosage: 0.500 G, 2X/DAY
     Route: 048
     Dates: start: 20240829, end: 20240905
  4. HYDROXYUREA [Suspect]
     Active Substance: HYDROXYUREA
     Indication: Neoplasm malignant

REACTIONS (4)
  - Platelet count decreased [Recovering/Resolving]
  - Condition aggravated [Recovering/Resolving]
  - Cardiovascular disorder [Recovering/Resolving]
  - Off label use [Unknown]

NARRATIVE: CASE EVENT DATE: 20240901
